FAERS Safety Report 13291953 (Version 1)
Quarter: 2017Q1

REPORT INFORMATION
  Report Type: Spontaneous
  Country: FR (occurrence: FR)
  Receive Date: 20170303
  Receipt Date: 20170303
  Transmission Date: 20170428
  Serious: Yes (Hospitalization, Other)
  Sender: FDA-Public Use
  Company Number: FR-BRISTOL-MYERS SQUIBB COMPANY-BMS-2017-017057

PATIENT
  Age: 23 Year
  Sex: Female
  Weight: 69 kg

DRUGS (2)
  1. HYDREA [Suspect]
     Active Substance: HYDROXYUREA
     Indication: SICKLE CELL ANAEMIA
     Dosage: 3 DF, QD
     Route: 048
  2. HYDREA [Suspect]
     Active Substance: HYDROXYUREA
     Indication: PRODUCT USED FOR UNKNOWN INDICATION
     Dosage: 1 DF, UNK
     Route: 048

REACTIONS (3)
  - Product use issue [Unknown]
  - Migraine [Unknown]
  - Pancytopenia [Unknown]

NARRATIVE: CASE EVENT DATE: 201701
